FAERS Safety Report 9706015 (Version 4)
Quarter: 2014Q2

REPORT INFORMATION
  Report Type: Report from Study
  Country: JP (occurrence: JP)
  Receive Date: 20131122
  Receipt Date: 20140410
  Transmission Date: 20141212
  Serious: Yes (Hospitalization, Other)
  Sender: FDA-Public Use
  Company Number: JP-ABBVIE-13P-087-1050597-00

PATIENT
  Age: 65 Year
  Sex: Female

DRUGS (23)
  1. LIPACREON [Suspect]
     Indication: PANCREATIC DISORDER
     Route: 048
     Dates: start: 20120425, end: 20120520
  2. LIPACREON [Suspect]
     Route: 048
     Dates: start: 20120521, end: 20130314
  3. TS-1 [Suspect]
     Indication: PRODUCT USED FOR UNKNOWN INDICATION
     Route: 048
     Dates: start: 20121029, end: 20121031
  4. TS-1 [Suspect]
     Dates: start: 20121101, end: 20130308
  5. URSODEOXYCHOLIC ACID [Concomitant]
     Indication: PRODUCT USED FOR UNKNOWN INDICATION
     Route: 048
     Dates: start: 20110526, end: 20130308
  6. SENNOSIDE [Concomitant]
     Indication: CONSTIPATION
     Route: 048
     Dates: start: 20121103, end: 20121119
  7. MAGNESIUM OXIDE [Concomitant]
     Indication: CONSTIPATION
     Route: 048
     Dates: start: 20121104, end: 20130124
  8. POVIDONE-IODINE [Concomitant]
     Indication: STOMATITIS
     Route: 048
     Dates: start: 20121110, end: 20121120
  9. DEXAMETHASONE [Concomitant]
     Indication: STOMATITIS
     Route: 048
     Dates: start: 20121110, end: 20130301
  10. HEPARINOID [Concomitant]
     Indication: STOMATITIS
     Dates: start: 20121112
  11. AZULENE [Concomitant]
     Indication: STOMATITIS
     Route: 048
     Dates: start: 20121112, end: 20130131
  12. REBAMIPIDE [Concomitant]
     Indication: STOMATITIS
     Route: 048
     Dates: start: 20121115, end: 20130124
  13. CLINDAMYCIN [Concomitant]
     Indication: PNEUMONIA
     Route: 050
     Dates: start: 20130313, end: 20130318
  14. TAZOBACTAM SODIUM [Concomitant]
     Indication: PNEUMONIA
     Dates: start: 20130318, end: 20130331
  15. VANCOMYCIN HYDROCHLORIDE [Concomitant]
     Indication: PRODUCT USED FOR UNKNOWN INDICATION
     Route: 050
     Dates: start: 20130318, end: 20130331
  16. ALLOPURINOL [Concomitant]
     Indication: PRODUCT USED FOR UNKNOWN INDICATION
     Dosage: ROUTE OF ADMINISTRATION: GARGLE WATER
     Route: 048
  17. GIMERACIL W/OTERACIL POTASSIUM/TEGAFUR [Concomitant]
     Indication: PANCREATIC CARCINOMA
     Dates: start: 20121029, end: 20121031
  18. GIMERACIL W/OTERACIL POTASSIUM/TEGAFUR [Concomitant]
     Dates: start: 20121101, end: 20130308
  19. GARENOXACIN MESILATE MONOHYDRATE [Concomitant]
     Indication: RESPIRATORY TRACT INFECTION
     Dates: start: 20130215, end: 20130221
  20. PREGABALIN [Concomitant]
     Indication: PERIPHERAL SENSORY NEUROPATHY
     Dates: start: 20130125, end: 20130308
  21. LOPERAMIDE HYDROCHLORIDE [Concomitant]
     Indication: DIARRHOEA
     Route: 048
     Dates: start: 20121211, end: 20121211
  22. LOPERAMIDE HYDROCHLORIDE [Concomitant]
     Indication: PRODUCT USED FOR UNKNOWN INDICATION
  23. FUROSEMIDE [Concomitant]
     Indication: CARDIAC FAILURE
     Route: 048
     Dates: start: 20130124, end: 20130314

REACTIONS (19)
  - Pneumonia [Recovered/Resolved]
  - Cardiac failure [Recovered/Resolved]
  - Pancreatic carcinoma [Not Recovered/Not Resolved]
  - Metastases to bone [Not Recovered/Not Resolved]
  - Peripheral sensory neuropathy [Not Recovered/Not Resolved]
  - Pain [Recovered/Resolved]
  - Hypertension [Recovered/Resolved]
  - Pain [Recovered/Resolved]
  - Hypertension [Recovered/Resolved]
  - Nausea [Recovered/Resolved]
  - Cancer pain [Recovered/Resolved]
  - Cancer pain [Not Recovered/Not Resolved]
  - Stomatitis [Recovered/Resolved]
  - Dermatitis acneiform [Recovered/Resolved]
  - Diarrhoea [Recovered/Resolved]
  - Respiratory tract infection [Recovered/Resolved]
  - Anaemia [Recovered/Resolved]
  - Constipation [Recovered/Resolved]
  - Hypoalbuminaemia [Recovered/Resolved]
